FAERS Safety Report 16084299 (Version 3)
Quarter: 2019Q4

REPORT INFORMATION
  Report Type: Report from Study
  Country: US (occurrence: US)
  Receive Date: 20190318
  Receipt Date: 20191129
  Transmission Date: 20200122
  Serious: Yes (Death, Hospitalization)
  Sender: FDA-Public Use
  Company Number: US-B.I. PHARMACEUTICALS,INC./RIDGEFIELD-2019-BI-010914

PATIENT
  Sex: Male

DRUGS (2)
  1. OFEV [Suspect]
     Active Substance: NINTEDANIB
     Indication: IDIOPATHIC PULMONARY FIBROSIS
     Dosage: DOSAGE: TAKE 1 CAPSULE TWICE A DAY 12 HOURS APART WITH FOOD
     Route: 048
  2. XARELTO [Concomitant]
     Active Substance: RIVAROXABAN
     Indication: DEEP VEIN THROMBOSIS
     Route: 065

REACTIONS (3)
  - Pleural effusion [Not Recovered/Not Resolved]
  - Idiopathic pulmonary fibrosis [Fatal]
  - Pneumonia [Fatal]
